FAERS Safety Report 13299748 (Version 5)
Quarter: 2017Q4

REPORT INFORMATION
  Report Type: Spontaneous
  Country: AU (occurrence: AU)
  Receive Date: 20170306
  Receipt Date: 20171004
  Transmission Date: 20180320
  Serious: Yes (Hospitalization)
  Sender: FDA-Public Use
  Company Number: AU-ABBVIE-17P-008-1896964-00

PATIENT
  Age: 75 Year
  Sex: Male

DRUGS (8)
  1. DUODOPA [Suspect]
     Active Substance: CARBIDOPA\LEVODOPA
     Indication: PARKINSON^S DISEASE
     Dosage: 16 HRS AT 1.6 MLS/HR
     Route: 050
     Dates: start: 20170224
  2. DUODOPA [Suspect]
     Active Substance: CARBIDOPA\LEVODOPA
     Dosage: 16 HRS AT 1.6 MLS/HR
     Route: 050
     Dates: start: 20170224, end: 20170226
  3. FLUDROCORTISONE [Concomitant]
     Active Substance: FLUDROCORTISONE
     Indication: ORTHOSTATIC HYPOTENSION
     Dosage: BD
     Route: 048
  4. PARACETAMOL [Concomitant]
     Active Substance: ACETAMINOPHEN
     Indication: BACK PAIN
     Dosage: 2 X 665 MGS?TDS
     Route: 048
  5. POTASSIUM CHLORIDE. [Concomitant]
     Active Substance: POTASSIUM CHLORIDE
     Indication: MINERAL SUPPLEMENTATION
     Dosage: 3 X 300 MGS BD
     Route: 048
  6. DOCUSATE PLUS SENNA [Concomitant]
     Active Substance: DOCUSATE SODIUM\SENNOSIDES A AND B
     Indication: CONSTIPATION
     Dosage: 2 X 50/8 MG MANE
     Route: 048
  7. PREGABALIN. [Concomitant]
     Active Substance: PREGABALIN
     Indication: NEURALGIA
     Dosage: 1X 15MG NOCTE?1X 75 MG MANE
  8. NALOXONE W/OXYCODONE [Concomitant]
     Active Substance: NALOXONE HYDROCHLORIDE\OXYCODONE HYDROCHLORIDE
     Indication: BACK PAIN
     Dosage: 1X 20/10 MG?BD
     Route: 048

REACTIONS (13)
  - Delirium [Recovering/Resolving]
  - Abdominal pain [Recovering/Resolving]
  - Atelectasis [Unknown]
  - Pneumonia aspiration [Unknown]
  - Oxygen saturation decreased [Recovering/Resolving]
  - Hallucination [Recovering/Resolving]
  - Parkinson^s disease [Unknown]
  - Device dislocation [Not Recovered/Not Resolved]
  - Cholelithiasis [Recovering/Resolving]
  - Incorrect route of drug administration [Unknown]
  - Pyrexia [Recovering/Resolving]
  - Pneumonia aspiration [Recovered/Resolved]
  - Cholangitis [Unknown]

NARRATIVE: CASE EVENT DATE: 20170224
